FAERS Safety Report 11603535 (Version 2)
Quarter: 2016Q1

REPORT INFORMATION
  Report Type: Report from Study
  Country: US (occurrence: US)
  Receive Date: 20151007
  Receipt Date: 20160208
  Transmission Date: 20160525
  Serious: No
  Sender: FDA-Public Use
  Company Number: GXBR2015US002093

PATIENT
  Sex: Female

DRUGS (1)
  1. OMNITROPE [Suspect]
     Active Substance: SOMATROPIN
     Indication: TURNER^S SYNDROME
     Dosage: 4 MG, QD
     Route: 065
     Dates: start: 201503

REACTIONS (1)
  - Incorrect dose administered by device [Not Recovered/Not Resolved]
